FAERS Safety Report 11739939 (Version 3)
Quarter: 2016Q1

REPORT INFORMATION
  Report Type: Spontaneous
  Country: US (occurrence: US)
  Receive Date: 20151113
  Receipt Date: 20160304
  Transmission Date: 20160525
  Serious: No
  Sender: FDA-Public Use
  Company Number: US-009507513-1511USA007494

PATIENT

DRUGS (1)
  1. HEXADROL [Suspect]
     Active Substance: DEXAMETHASONE
     Indication: ASTHMA
     Dosage: SINGLE DOSE, 0.6MG/KG, MAXIMUM 16MG
     Route: 048

REACTIONS (1)
  - Drug ineffective [Unknown]
